FAERS Safety Report 5819452-5 (Version None)
Quarter: 2008Q3

REPORT INFORMATION
  Report Type: 
  Country: None (occurrence: None)
  Receive Date: 20080723
  Receipt Date: 20080718
  Transmission Date: 20090109
  Serious: Yes (Other)
  Sender: FDA-Public Use
  Company Number: JP-SANOFI-SYNTHELABO-F01200800591

PATIENT
  Sex: Male

DRUGS (11)
  1. NORVASC [Concomitant]
     Dosage: UNK
     Dates: start: 20071023
  2. SIMVASTATIN [Concomitant]
     Dosage: UNK
     Dates: start: 20071023
  3. DEPAS [Concomitant]
     Dosage: UNK
     Dates: start: 20070927
  4. MAGNESIUM SULFATE [Concomitant]
     Dosage: UNK
     Dates: start: 20070925
  5. DEXART [Concomitant]
     Dosage: UNK
     Dates: start: 20070925
  6. CALCICOL [Concomitant]
     Dosage: UNK
     Dates: start: 20070925
  7. KYTRIL [Concomitant]
     Dosage: UNK
     Dates: start: 20070925
  8. AVASTIN [Suspect]
     Route: 041
     Dates: start: 20071106, end: 20071106
  9. FLUOROURACIL [Suspect]
     Route: 042
     Dates: start: 20071106, end: 20071107
  10. ELPLAT [Suspect]
     Indication: COLON CANCER METASTATIC
     Route: 041
     Dates: start: 20071106, end: 20071106
  11. CALCIUM LEVOFOLINATE [Suspect]
     Dosage: UNK
     Route: 041
     Dates: start: 20071106, end: 20071107

REACTIONS (1)
  - PRINZMETAL ANGINA [None]
